FAERS Safety Report 8812288 (Version 1)
Quarter: 2012Q4

REPORT INFORMATION
  Report Type: 
  Country: MX (occurrence: MX)
  Receive Date: 20120927
  Receipt Date: 20120927
  Transmission Date: 20130627
  Serious: Yes (Hospitalization)
  Sender: FDA-Public Use
  Company Number: MX-B.I. PHARMACEUTICALS,INC./RIDGEFIELD-2012-MX-00251MX

PATIENT
  Age: 41 Year
  Sex: Female

DRUGS (3)
  1. LINAGLIPTIN [Suspect]
     Indication: DIABETES MELLITUS
     Dosage: 5 mg
     Route: 048
     Dates: start: 20111201
  2. METFORMIN [Suspect]
     Indication: DIABETES MELLITUS
     Route: 048
     Dates: start: 20111201
  3. NOVOTIRAL [Concomitant]
     Indication: HYPOTHYROIDISM
     Dosage: Strength: 100/20mcg Daily dose:
     Route: 048

REACTIONS (1)
  - Gastroenteritis eosinophilic [Unknown]
